FAERS Safety Report 10390957 (Version 2)
Quarter: 2014Q3

REPORT INFORMATION
  Report Type: Report from Study
  Country: CN (occurrence: CN)
  Receive Date: 20140818
  Receipt Date: 20140904
  Transmission Date: 20150326
  Serious: Yes (Life-Threatening, Hospitalization)
  Sender: FDA-Public Use
  Company Number: CN-BRISTOL-MYERS SQUIBB COMPANY-21305917

PATIENT
  Age: 65 Year
  Sex: Male

DRUGS (1)
  1. BYETTA [Suspect]
     Active Substance: EXENATIDE
     Indication: DIABETES MELLITUS
     Dosage: 10JUN2014-11JUN2014
     Route: 058
     Dates: start: 20140610, end: 20140611

REACTIONS (4)
  - Palpitations [Recovered/Resolved]
  - Cerebrovascular disorder [Recovered/Resolved]
  - Cardiovascular disorder [Recovered/Resolved]
  - Arrhythmia [Recovered/Resolved]

NARRATIVE: CASE EVENT DATE: 20140611
